FAERS Safety Report 17327742 (Version 4)
Quarter: 2020Q1

REPORT INFORMATION
  Report Type: Spontaneous
  Country: JP (occurrence: JP)
  Receive Date: 20200127
  Receipt Date: 20200210
  Transmission Date: 20200409
  Serious: Yes (Death, Other)
  Sender: FDA-Public Use
  Company Number: JP-ASTRAZENECA-2019SE21187

PATIENT
  Age: 20567 Day
  Sex: Male
  Weight: 62 kg

DRUGS (4)
  1. LANSOPRAZOLE. [Concomitant]
     Active Substance: LANSOPRAZOLE
     Route: 048
     Dates: start: 20190204, end: 20190610
  2. IMFINZI [Suspect]
     Active Substance: DURVALUMAB
     Indication: NON-SMALL CELL LUNG CANCER
     Route: 041
     Dates: start: 20190111, end: 20190226
  3. LEVOFLOXACIN HEMIHYDRATE [Suspect]
     Active Substance: LEVOFLOXACIN
     Route: 048
     Dates: start: 20190129, end: 20190204
  4. IMFINZI [Suspect]
     Active Substance: DURVALUMAB
     Indication: NON-SMALL CELL LUNG CANCER
     Route: 041

REACTIONS (8)
  - Lung neoplasm malignant [Fatal]
  - Metastases to lymph nodes [Unknown]
  - Bone marrow disorder [Unknown]
  - Radiation pneumonitis [Recovering/Resolving]
  - Metastases to adrenals [Unknown]
  - Blood glucose increased [Unknown]
  - Malignant neoplasm progression [Fatal]
  - Colon cancer [Unknown]

NARRATIVE: CASE EVENT DATE: 20190128
